FAERS Safety Report 17182411 (Version 1)
Quarter: 2019Q4

REPORT INFORMATION
  Report Type: Report from Study
  Country: GB (occurrence: GB)
  Receive Date: 20191220
  Receipt Date: 20191220
  Transmission Date: 20200122
  Serious: Yes (Other)
  Sender: FDA-Public Use
  Company Number: GB-AMGEN-GBRNI2019211085

PATIENT
  Sex: Male

DRUGS (1)
  1. AIMOVIG [Suspect]
     Active Substance: ERENUMAB-AOOE
     Indication: MIGRAINE
     Dosage: 70 MILLIGRAM
     Route: 058

REACTIONS (5)
  - Hemiparesis [Unknown]
  - Headache [Unknown]
  - Dizziness [Unknown]
  - Migraine [Unknown]
  - Dysarthria [Unknown]
